FAERS Safety Report 8663670 (Version 4)
Quarter: 2013Q1

REPORT INFORMATION
  Report Type: Spontaneous
  Country: US (occurrence: US)
  Receive Date: 20120713
  Receipt Date: 20130218
  Transmission Date: 20140127
  Serious: No
  Sender: FDA-Public Use
  Company Number: US-PFIZER INC-2012166566

PATIENT
  Age: 65 Year
  Sex: Female

DRUGS (13)
  1. NEURONTIN [Suspect]
     Indication: NEURALGIA
     Dosage: UNK, (MAXIMUM DOSE OF 2400 MG DAILY)
  2. GABAPENTIN [Suspect]
     Indication: NEURALGIA
     Dosage: 300 MG, UNK
     Route: 048
  3. DILAUDID [Concomitant]
     Dosage: 4 MG, (TAKE 1 TABLET, PRN, EVERY 4-6 HOURS)
     Route: 048
  4. FOLIC ACID [Concomitant]
     Dosage: 1 MG, 1X/DAY
     Route: 048
  5. VOLTAREN [Concomitant]
     Dosage: UNKNOWN DOSE AS NEEDED
  6. FUROSEMIDE [Concomitant]
     Dosage: 40 MG, 1X/DAY
     Route: 048
  7. CELLCEPT [Concomitant]
     Dosage: 1500 MG, 2X/DAY (250 MG CAPSULE (TAKE 6 CAPSULE(S)
     Route: 048
  8. CRESTOR [Concomitant]
     Dosage: 40 MG, 1X/DAY
     Route: 048
  9. PLAVIX [Concomitant]
     Dosage: 75 MG, 1X/DAY
     Route: 048
  10. GLYBURIDE [Concomitant]
     Dosage: 5 MG, 3X/DAY
     Route: 048
  11. LANTUS [Concomitant]
     Dosage: UNK
  12. SYNTHROID [Concomitant]
     Dosage: UNK
  13. NIFEDIPINE [Concomitant]
     Dosage: UNK

REACTIONS (1)
  - Drug ineffective [Unknown]
